FAERS Safety Report 9971365 (Version 1)
Quarter: 2014Q1

REPORT INFORMATION
  Report Type: Report from Study
  Country: US (occurrence: US)
  Receive Date: 20140306
  Receipt Date: 20140306
  Transmission Date: 20141002
  Serious: No
  Sender: FDA-Public Use
  Company Number: US-ABBVIE-13P-163-1149272-00

PATIENT
  Age: 41 Year
  Sex: Female

DRUGS (6)
  1. HUMIRA [Suspect]
     Indication: RHEUMATOID ARTHRITIS
     Dates: start: 20130905
  2. IBUPROFEN [Suspect]
  3. FLUOXETINE [Concomitant]
     Indication: DEPRESSION
  4. SPIRONOLACTONE [Concomitant]
     Indication: BLOOD TESTOSTERONE INCREASED
     Dosage: 40 OR 50 MG DAILY
  5. DOXYCYCLINE [Concomitant]
     Indication: RASH
  6. HYDROCORTISONE [Concomitant]
     Indication: DERMATITIS ATOPIC

REACTIONS (4)
  - Fatigue [Not Recovered/Not Resolved]
  - Injection site pain [Not Recovered/Not Resolved]
  - Injection site pain [Not Recovered/Not Resolved]
  - Migraine [Not Recovered/Not Resolved]
